FAERS Safety Report 5947461-4 (Version None)
Quarter: 2008Q4

REPORT INFORMATION
  Report Type: 
  Country: None (occurrence: None)
  Receive Date: 20081110
  Receipt Date: 20081029
  Transmission Date: 20090506
  Serious: Yes (Other)
  Sender: FDA-Public Use
  Company Number: PHHY2008BR23902

PATIENT
  Sex: Female
  Weight: 124 kg

DRUGS (5)
  1. FORADIL / FOR 258A / CGP 25827 [Suspect]
     Indication: BRONCHITIS
  2. FORASEQ [Suspect]
     Indication: BRONCHITIS
     Dosage: EVERY 12 HOURS
  3. FORASEQ [Suspect]
     Indication: FATIGUE
  4. BUDECORT [Concomitant]
     Indication: RHINITIS
     Dosage: 2 DOSES IN BOTH NOSTRIL WHEN NEEDED
     Route: 045
  5. ALDOMET [Concomitant]
     Dosage: 1 DF, Q6H
     Route: 048
     Dates: start: 20080501

REACTIONS (5)
  - DRUG EFFECT DECREASED [None]
  - DRUG EXPOSURE DURING PREGNANCY [None]
  - GESTATIONAL DIABETES [None]
  - HYPERTENSION [None]
  - WEIGHT INCREASED [None]
